FAERS Safety Report 4387460-X (Version None)
Quarter: 2004Q2

REPORT INFORMATION
  Report Type: 
  Country: None (occurrence: None)
  Receive Date: 20040630
  Receipt Date: 20040227
  Transmission Date: 20050107
  Serious: No
  Sender: FDA-Public Use
  Company Number: US-BRISTOL-MYERS SQUIBB COMPANY-12545240

PATIENT

DRUGS (1)
  1. REYATAZ [Suspect]

REACTIONS (2)
  - DEPRESSION [None]
  - FATIGUE [None]
